FAERS Safety Report 9114642 (Version 2)
Quarter: 2013Q1

REPORT INFORMATION
  Report Type: Spontaneous
  Country: DE (occurrence: None)
  Receive Date: 20130128
  Receipt Date: 20130128
  Transmission Date: 20140127
  Serious: Yes (Other)
  Sender: FDA-Public Use
  Company Number: 2135225-2013-00012

PATIENT
  Sex: Female

DRUGS (1)
  1. AETHOXYSKLEROL [Suspect]
     Indication: SCLEROTHERAPY
     Dosage: UNK,  UNK,  UNK?UNKNOWN

REACTIONS (1)
  - Type I hypersensitivity [None]
